FAERS Safety Report 13076805 (Version 1)
Quarter: 2016Q4

REPORT INFORMATION
  Report Type: Spontaneous
  Country: JP (occurrence: JP)
  Receive Date: 20161230
  Receipt Date: 20161230
  Transmission Date: 20170207
  Serious: Yes (Other)
  Sender: FDA-Public Use
  Company Number: JP-MYLANLABS-2016M1058542

PATIENT

DRUGS (3)
  1. AMBISOME LYOPHILISIERTES [Concomitant]
     Indication: PRODUCT USED FOR UNKNOWN INDICATION
     Dosage: 150 MG, QD
     Route: 041
     Dates: start: 20151101, end: 20151109
  2. VANCOMYCIN [Suspect]
     Active Substance: VANCOMYCIN
     Indication: PNEUMONIA STAPHYLOCOCCAL
     Dosage: 1 G, BID
     Route: 041
     Dates: start: 20151101, end: 20151111
  3. ZOSYN [Concomitant]
     Active Substance: PIPERACILLIN SODIUM\TAZOBACTAM SODIUM
     Indication: PRODUCT USED FOR UNKNOWN INDICATION
     Dosage: 4.5 G, QID
     Route: 041
     Dates: start: 20151104, end: 20151111

REACTIONS (1)
  - Therapeutic response decreased [Unknown]
